FAERS Safety Report 7092688-4 (Version None)
Quarter: 2010Q4

REPORT INFORMATION
  Report Type: 
  Country: None (occurrence: None)
  Receive Date: 20101101
  Receipt Date: 20101025
  Transmission Date: 20110411
  Serious: Yes (Death)
  Sender: FDA-Public Use
  Company Number: 2010SP056884

PATIENT
  Age: 59 Year
  Sex: Male

DRUGS (3)
  1. INTEGRILIN [Suspect]
     Indication: ARTERIOGRAM CORONARY
     Dosage: IV
     Route: 042
     Dates: start: 20101011, end: 20101011
  2. LOVENOX [Concomitant]
  3. KARDEGIC [Concomitant]

REACTIONS (2)
  - CARDIAC TAMPONADE [None]
  - PERICARDIAL HAEMORRHAGE [None]
